FAERS Safety Report 18507431 (Version 3)
Quarter: 2021Q1

REPORT INFORMATION
  Report Type: Report from Study
  Country: BE (occurrence: BE)
  Receive Date: 20201116
  Receipt Date: 20210312
  Transmission Date: 20210419
  Serious: No
  Sender: FDA-Public Use
  Company Number: BE-CELGENEUS-BEL-20201103386

PATIENT
  Age: 76 Year
  Sex: Male
  Weight: 64 kg

DRUGS (6)
  1. FEDRATINIB [Suspect]
     Active Substance: FEDRATINIB
     Indication: MYELOFIBROSIS
     Dosage: 400 MG X 1 X 1 DAYS
     Route: 048
     Dates: start: 20200214, end: 20200414
  2. LAMOTRIGINE. [Concomitant]
     Active Substance: LAMOTRIGINE
     Indication: EPILEPSY
     Dosage: 50 MG X 2 X 1 DAYS
     Route: 048
     Dates: start: 20110504
  3. LOORTAN PLUS(100 MG LOSARTAN/25 MG HYDROCHLOORTHIAZIDE) [Concomitant]
     Indication: HYPERTENSION
     Dosage: 1 TABLET X 1 X 1 DAYS
     Route: 048
     Dates: start: 20130805
  4. FEDRATINIB [Suspect]
     Active Substance: FEDRATINIB
     Dosage: 0 MG X 1 X 1 DAYS
     Route: 048
     Dates: start: 20200415, end: 20200421
  5. FEDRATINIB [Suspect]
     Active Substance: FEDRATINIB
     Dosage: 300 MG X 1 X 1 DAYS
     Route: 048
     Dates: start: 20200422
  6. ZOLPIDEM [Concomitant]
     Active Substance: ZOLPIDEM TARTRATE
     Indication: INSOMNIA
     Dosage: 10 MG X 1 X 1 DAYS
     Route: 048
     Dates: start: 20200128

REACTIONS (1)
  - Vitamin B1 decreased [Recovered/Resolved]

NARRATIVE: CASE EVENT DATE: 20201023
